FAERS Safety Report 10946752 (Version 1)
Quarter: 2015Q1

REPORT INFORMATION
  Report Type: Spontaneous
  Country: AU (occurrence: AU)
  Receive Date: 20150323
  Receipt Date: 20150323
  Transmission Date: 20150721
  Serious: Yes (Death, Other)
  Sender: FDA-Public Use
  Company Number: AU-ASTRAZENECA-2015SE25778

PATIENT
  Age: 0 Day
  Sex: Male
  Weight: 1.7 kg

DRUGS (3)
  1. SERTRALINE HYDROCHLORIDE. [Concomitant]
     Active Substance: SERTRALINE HYDROCHLORIDE
     Route: 064
  2. SEROQUEL XR [Suspect]
     Active Substance: QUETIAPINE FUMARATE
     Route: 064
  3. ELEVIT [Concomitant]
     Active Substance: FOLIC ACID\IRON\MINERALS\VITAMINS
     Route: 064

REACTIONS (4)
  - Haemorrhage foetal [Fatal]
  - Hypovolaemia [Fatal]
  - Cardiac failure [Fatal]
  - Stillbirth [Fatal]

NARRATIVE: CASE EVENT DATE: 20130524
